FAERS Safety Report 6125695-6 (Version None)
Quarter: 2009Q1

REPORT INFORMATION
  Report Type: 
  Country: None (occurrence: None)
  Receive Date: 20090319
  Receipt Date: 20090319
  Transmission Date: 20090719
  Serious: Yes (Other)
  Sender: FDA-Public Use
  Company Number: None

PATIENT
  Sex: Male

DRUGS (1)
  1. MICAFUNGIN [Suspect]
     Dosage: 100MG IV
     Route: 042
     Dates: start: 20090203, end: 20090203

REACTIONS (4)
  - ANGIOEDEMA [None]
  - DRUG HYPERSENSITIVITY [None]
  - STRIDOR [None]
  - TACHYCARDIA [None]
